FAERS Safety Report 8116569-X (Version None)
Quarter: 2012Q1

REPORT INFORMATION
  Report Type: 
  Country: None (occurrence: None)
  Receive Date: 20120206
  Receipt Date: 20120127
  Transmission Date: 20120608
  Serious: Yes (Other)
  Sender: FDA-Public Use
  Company Number: US-BAYER-201033142NA

PATIENT
  Age: 26 Year
  Sex: Female
  Weight: 101.59 kg

DRUGS (5)
  1. YAZ [Suspect]
     Indication: ACNE
     Dosage: UNK UNK, QD
     Route: 048
     Dates: start: 19950101, end: 20070101
  2. LASIX [Concomitant]
     Indication: FLUID RETENTION
  3. THYROID MEDICATIONS [Concomitant]
  4. ENALAPRIL MALEATE [Concomitant]
     Indication: HYPERTENSION
     Dosage: UNK
     Dates: start: 20070101
  5. PRAVASTATIN [Concomitant]
     Indication: BLOOD CHOLESTEROL INCREASED
     Dosage: UNK
     Dates: start: 20070101

REACTIONS (11)
  - DEPRESSION [None]
  - CHOLECYSTITIS CHRONIC [None]
  - CONSTIPATION [None]
  - ABDOMINAL DISTENSION [None]
  - FLATULENCE [None]
  - GALLBLADDER PAIN [None]
  - APHAGIA [None]
  - DIARRHOEA [None]
  - DYSPEPSIA [None]
  - ANXIETY [None]
  - EMOTIONAL DISTRESS [None]
